FAERS Safety Report 9388863 (Version 2)
Quarter: 2013Q3

REPORT INFORMATION
  Report Type: Spontaneous
  Country: CO (occurrence: CO)
  Receive Date: 20130708
  Receipt Date: 20130726
  Transmission Date: 20140515
  Serious: Yes (Death, Hospitalization, Other)
  Sender: FDA-Public Use
  Company Number: CO-PFIZER INC-2013197855

PATIENT
  Age: 79 Year
  Sex: Male

DRUGS (2)
  1. DETRUSITOL SR [Suspect]
     Dosage: 4 MG, DAILY
     Route: 048
  2. LOSARTAN [Concomitant]
     Indication: HYPERTENSION
     Dosage: 1X/DAY
     Route: 048
     Dates: start: 2010

REACTIONS (4)
  - Respiratory failure [Fatal]
  - Hemiplegia [Unknown]
  - Metastases to central nervous system [Unknown]
  - Terminal state [Unknown]
